FAERS Safety Report 8590254 (Version 7)
Quarter: 2013Q4

REPORT INFORMATION
  Report Type: Report from Study
  Country: US (occurrence: US)
  Receive Date: 20120601
  Receipt Date: 20131125
  Transmission Date: 20140711
  Serious: Yes (Hospitalization)
  Sender: FDA-Public Use
  Company Number: US-JNJFOC-20120519343

PATIENT
  Age: 63 Year
  Sex: Female
  Weight: 63.05 kg

DRUGS (9)
  1. PANCREAZE [Suspect]
     Indication: DYSPEPSIA
     Dosage: 16800 USP UNITS/ CAPSULE??6 CAPSULES (2 IN AM, 2 IN NOON AND 2 AT DINNER TIME)
     Route: 048
     Dates: start: 20120518
  2. PANCREAZE [Suspect]
     Indication: DYSPEPSIA
     Dosage: 16800 USP UNITS/ CAPSULE??6 CAPSULES (2 IN AM, 2 IN NOON AND 2 AT DINNER TIME)
     Route: 048
     Dates: start: 201201, end: 201205
  3. PANCREAZE [Suspect]
     Indication: DYSPEPSIA
     Dosage: 16800 UNITS/CAPSULE
     Route: 048
     Dates: start: 2011, end: 2012
  4. BETA-BLOCKER (NAME UNSPECIFIED) [Suspect]
     Indication: PRODUCT USED FOR UNKNOWN INDICATION
     Route: 065
  5. ALL OTHER THERAPEUTIC PRODUCTS [Concomitant]
     Indication: NUTRITIONAL SUPPLEMENTATION
     Route: 048
  6. OMEPRAZOLE [Concomitant]
     Indication: ANTACID THERAPY
     Route: 048
     Dates: start: 201201
  7. SIMVASTATIN [Concomitant]
     Indication: BLOOD CHOLESTEROL
     Route: 065
  8. AVAPRO [Concomitant]
     Indication: HYPERTENSION
     Route: 065
     Dates: start: 201205
  9. ATIVAN [Concomitant]
     Indication: ANXIETY
     Route: 065
     Dates: start: 201111

REACTIONS (12)
  - Muscle spasms [Recovered/Resolved]
  - Abdominal pain upper [Recovered/Resolved]
  - Diarrhoea [Recovered/Resolved]
  - Malaise [Recovered/Resolved]
  - Heart rate decreased [Recovered/Resolved]
  - Abdominal pain upper [Recovered/Resolved]
  - Haemorrhage [Recovered/Resolved]
  - Nausea [Recovered/Resolved]
  - Pain [Recovered/Resolved]
  - Expired drug administered [Recovered/Resolved]
  - Malaise [Recovered/Resolved]
  - Flatulence [Recovered/Resolved]
